FAERS Safety Report 8881275 (Version 1)
Quarter: 2012Q4

REPORT INFORMATION
  Report Type: 
  Country: ES (occurrence: ES)
  Receive Date: 20121031
  Receipt Date: 20121031
  Transmission Date: 20130627
  Serious: Yes (Hospitalization)
  Sender: FDA-Public Use
  Company Number: ES-ELI_LILLY_AND_COMPANY-ES201207005091

PATIENT
  Sex: Female

DRUGS (2)
  1. FORSTEO [Suspect]
     Dosage: UNK, unknown
     Route: 065
     Dates: start: 201203
  2. FORSTEO [Suspect]

REACTIONS (4)
  - Weight decreased [Unknown]
  - Arthralgia [Unknown]
  - Investigation [Unknown]
  - Decreased appetite [Unknown]
